FAERS Safety Report 10851343 (Version 1)
Quarter: 2015Q1

REPORT INFORMATION
  Report Type: Spontaneous
  Country: US (occurrence: US)
  Receive Date: 20150222
  Receipt Date: 20150222
  Transmission Date: 20150721
  Serious: No
  Sender: FDA-Public Use
  Company Number: US-ALLERGAN-1408375US

PATIENT
  Age: 38 Year
  Sex: Male

DRUGS (1)
  1. BOTOX [Suspect]
     Active Substance: ONABOTULINUMTOXINA
     Indication: PRODUCT USED FOR UNKNOWN INDICATION
     Dosage: UNK, SINGLE

REACTIONS (6)
  - Drug ineffective [Unknown]
  - Injection site rash [Unknown]
  - Acne [Unknown]
  - Adverse event [Unknown]
  - Pyrexia [Unknown]
  - Musculoskeletal stiffness [Unknown]
